FAERS Safety Report 9470399 (Version 1)
Quarter: 2013Q3

REPORT INFORMATION
  Report Type: Spontaneous
  Country: RO (occurrence: RO)
  Receive Date: 20130822
  Receipt Date: 20130822
  Transmission Date: 20140515
  Serious: Yes (Hospitalization)
  Sender: FDA-Public Use
  Company Number: PHHY2013RO089983

PATIENT
  Age: 10 Year
  Sex: Male

DRUGS (12)
  1. CARBAMAZEPINE [Suspect]
     Indication: ENCEPHALITIS
     Dosage: UNK UKN, UNK
  2. CARBAMAZEPINE [Interacting]
     Dosage: 600 MG, DAILY
  3. AMINOGLUTETHIMIDE [Interacting]
     Indication: PITUITARY TUMOUR BENIGN
     Dosage: UNK UKN, UNK
  4. COTRIMOXAZOLE [Interacting]
     Indication: PNEUMOCYSTIS JIROVECII INFECTION
     Dosage: 800 MG, DAILY
  5. COTRIMOXAZOLE [Interacting]
     Dosage: 600 MG, DAILY
  6. DEXAMETHASONE [Concomitant]
     Dosage: UNK UKN, UNK
  7. CEFTRIAXONE [Concomitant]
     Dosage: 3 G, DAILY
  8. GENTAMICIN [Concomitant]
     Dosage: 160 MG, DAILY
  9. MEROPENEM [Concomitant]
     Dosage: 3 G, DAILY
  10. VANCOMYCIN [Concomitant]
     Dosage: 2 G, DAILY
  11. HYDROCORTISONE HEMISUCCINATE [Concomitant]
     Dosage: UNK UKN, UNK
  12. FLUCONAZOLE [Concomitant]
     Indication: OROPHARYNGEAL DISCOMFORT
     Dosage: 150 MG,DAILY

REACTIONS (1)
  - Drug interaction [Unknown]
